FAERS Safety Report 10174793 (Version 1)
Quarter: 2014Q2

REPORT INFORMATION
  Report Type: Spontaneous
  Country: US (occurrence: US)
  Receive Date: 20140515
  Receipt Date: 20140515
  Transmission Date: 20141212
  Serious: No
  Sender: FDA-Public Use
  Company Number: US-BAYER-2014-065307

PATIENT
  Age: 55 Year
  Sex: Male
  Weight: 109 kg

DRUGS (13)
  1. BAYER EXTRA STRENGTH BACK + BODY PAIN [Suspect]
     Indication: HEADACHE
     Dosage: 2 DF, QID
     Route: 048
     Dates: start: 201311, end: 20140430
  2. ALEVE CAPLET [Suspect]
     Dosage: UNK
  3. MOBIC [Concomitant]
  4. SIMVASTATIN [Concomitant]
  5. NEURONTIN [Concomitant]
  6. LITHIUM [Concomitant]
  7. WELLBUTRIN [Concomitant]
  8. AMBIEN [Concomitant]
  9. SYNTHROID [Concomitant]
  10. CRANBERRY [Concomitant]
  11. VITAMIN C [Concomitant]
  12. CENTRUM [Concomitant]
  13. PROCARDIA [Concomitant]

REACTIONS (2)
  - Adverse event [Recovered/Resolved]
  - Wrong technique in drug usage process [None]
